FAERS Safety Report 6874937-8 (Version None)
Quarter: 2010Q2

REPORT INFORMATION
  Report Type: 
  Country: None (occurrence: None)
  Receive Date: 20100616
  Receipt Date: 20090515
  Transmission Date: 20101027
  Serious: Yes (Hospitalization)
  Sender: FDA-Public Use
  Company Number: WAES 0901USA00813

PATIENT
  Age: 54 Year
  Sex: Female
  Weight: 107.9561 kg

DRUGS (2)
  1. HYZAAR [Suspect]
     Indication: HYPERTENSION
     Dosage: 100 MG/DAILY/PO
     Route: 048
     Dates: start: 20070117, end: 20070119
  2. BENICAR [Concomitant]

REACTIONS (2)
  - PALPITATIONS [None]
  - RASH MACULO-PAPULAR [None]
